FAERS Safety Report 9086142 (Version 1)
Quarter: 2013Q1

REPORT INFORMATION
  Report Type: Report from Study
  Country: US (occurrence: US)
  Receive Date: 20130131
  Receipt Date: 20130131
  Transmission Date: 20140127
  Serious: Yes (Hospitalization, Other)
  Sender: FDA-Public Use
  Company Number: US-009507513-1301USA011987

PATIENT
  Age: 58 Year
  Sex: Male

DRUGS (2)
  1. MEVACOR TABLET [Suspect]
     Dosage: 20 MG, QID
     Route: 048
     Dates: start: 20130101, end: 20130114
  2. ALLOPURINOL [Concomitant]

REACTIONS (7)
  - Acute respiratory failure [Not Recovered/Not Resolved]
  - Prostatic disorder [Not Recovered/Not Resolved]
  - Vomiting [Not Recovered/Not Resolved]
  - Dysarthria [Not Recovered/Not Resolved]
  - Decreased appetite [Not Recovered/Not Resolved]
  - Tongue oedema [Not Recovered/Not Resolved]
  - Mental status changes [Not Recovered/Not Resolved]
